FAERS Safety Report 24179359 (Version 1)
Quarter: 2024Q3

REPORT INFORMATION
  Report Type: Spontaneous
  Country: US (occurrence: US)
  Receive Date: 20240806
  Receipt Date: 20240806
  Transmission Date: 20241017
  Serious: No
  Sender: BAYER
  Company Number: US-BAYER-2024A111368

PATIENT
  Age: 76 Year
  Sex: Female

DRUGS (1)
  1. KERENDIA [Suspect]
     Active Substance: FINERENONE
     Dates: start: 20240622, end: 20240731

REACTIONS (2)
  - Hypertension [None]
  - Hypotonia [None]

NARRATIVE: CASE EVENT DATE: 20240730
